FAERS Safety Report 9843924 (Version 1)
Quarter: 2013Q4

REPORT INFORMATION
  Report Type: Spontaneous
  Country: US (occurrence: None)
  Receive Date: 20131223
  Receipt Date: 20131223
  Transmission Date: 20140711
  Serious: No
  Sender: FDA-Public Use
  Company Number: 1000049522

PATIENT
  Age: 84 Year
  Sex: Male

DRUGS (5)
  1. LINZESS (LINACLOTIDE) (145 MICROGRAM, CAPSULES) [Suspect]
     Indication: ABDOMINAL PAIN
     Dosage: 145MCG (145 MCG, 1 IN 1 D), ORAL
     Route: 048
     Dates: start: 20130912, end: 20130928
  2. LINZESS (LINACLOTIDE) (145 MICROGRAM, CAPSULES) [Suspect]
     Indication: ABDOMINAL PAIN
     Dosage: 145MCG (145 MCG, 1 IN 1 D), ORAL
     Route: 048
     Dates: start: 20131001
  3. FLOMAX (TAMSULOSIN) (TAMSULOSIN) [Concomitant]
  4. PLAVIX (CLOPIDOGREL BISULFATE) (CLOPIDOGREL BISULFATE) [Concomitant]
  5. WARFARIN (WARFARIN) (WARFARIN) [Concomitant]

REACTIONS (3)
  - Diarrhoea [None]
  - Faecal incontinence [None]
  - Off label use [None]
